FAERS Safety Report 16451058 (Version 1)
Quarter: 2019Q2

REPORT INFORMATION
  Report Type: Spontaneous
  Country: US (occurrence: US)
  Receive Date: 20190619
  Receipt Date: 20190619
  Transmission Date: 20190711
  Serious: No
  Sender: FDA-Public Use
  Company Number: US-PFIZER INC-2019256458

PATIENT
  Age: 71 Year
  Sex: Female
  Weight: 49.9 kg

DRUGS (5)
  1. CALCIUM [Concomitant]
     Active Substance: CALCIUM
     Dosage: UNK
  2. VITAMIN D [Concomitant]
     Active Substance: VITAMIN D NOS
     Dosage: UNK
  3. FLECTOR [Suspect]
     Active Substance: DICLOFENAC EPOLAMINE
     Indication: SCIATICA
     Dosage: 1 DF, UNK (1 PATCH APPLIED ONTO THE SKIN DIRECTLY)
     Route: 062
     Dates: start: 20190603, end: 20190604
  4. PROBIOTICA [Concomitant]
     Active Substance: PROBIOTICS NOS
     Dosage: UNK
  5. FLECTOR [Suspect]
     Active Substance: DICLOFENAC EPOLAMINE
     Indication: BACK PAIN
     Dosage: 1 DF, UNK (1 PATCH APPLIED ONTO THE SKIN DIRECTLY)
     Route: 062
     Dates: start: 20190608

REACTIONS (2)
  - Application site rash [Recovering/Resolving]
  - Application site inflammation [Unknown]

NARRATIVE: CASE EVENT DATE: 20190604
